FAERS Safety Report 18570268 (Version 1)
Quarter: 2020Q4

REPORT INFORMATION
  Report Type: Spontaneous
  Country: US (occurrence: US)
  Receive Date: 20201201
  Receipt Date: 20201201
  Transmission Date: 20210114
  Serious: Yes (Hospitalization, Other)
  Sender: FDA-Public Use
  Company Number: None

PATIENT
  Age: 69 Year
  Sex: Female

DRUGS (22)
  1. ROSUVASTATIN. [Concomitant]
     Active Substance: ROSUVASTATIN
  2. IPRATROPIUM NASL SPRAY [Concomitant]
  3. AMBRISENTAN 10MG TABLETS 30/BO: 10MG [Suspect]
     Active Substance: AMBRISENTAN
     Indication: PULMONARY HYPERTENSION
     Route: 048
     Dates: start: 201510
  4. SILDENAFIL. [Concomitant]
     Active Substance: SILDENAFIL
  5. AZATHIOPRINE. [Concomitant]
     Active Substance: AZATHIOPRINE
  6. AMLODIPINE [Concomitant]
     Active Substance: AMLODIPINE BESYLATE
  7. MOMETASONE TOP CREAM [Concomitant]
  8. TYLENOL [Concomitant]
     Active Substance: ACETAMINOPHEN
  9. VENLAFAXINE [Concomitant]
     Active Substance: VENLAFAXINE HYDROCHLORIDE
  10. POTASSIUM CHLORIDE. [Concomitant]
     Active Substance: POTASSIUM CHLORIDE
  11. TORSEMIDE. [Concomitant]
     Active Substance: TORSEMIDE
  12. METOLAZONE. [Concomitant]
     Active Substance: METOLAZONE
  13. LORATADINE. [Concomitant]
     Active Substance: LORATADINE
  14. ALVESCO HFA [Concomitant]
  15. PREDNISONE. [Concomitant]
     Active Substance: PREDNISONE
  16. ESCITALOPRAM [Concomitant]
     Active Substance: ESCITALOPRAM OXALATE
  17. PANTOPRAZOLE [Concomitant]
     Active Substance: PANTOPRAZOLE
  18. XALATAN OPHT DROP [Concomitant]
  19. ALPRAZOLAM. [Concomitant]
     Active Substance: ALPRAZOLAM
  20. SPIRONOLACTONE. [Concomitant]
     Active Substance: SPIRONOLACTONE
  21. FLONASE [Concomitant]
     Active Substance: FLUTICASONE PROPIONATE
  22. MVI [Concomitant]
     Active Substance: VITAMINS

REACTIONS (3)
  - Respiratory failure [None]
  - Dyspnoea [None]
  - Hypoxia [None]

NARRATIVE: CASE EVENT DATE: 20201103
